FAERS Safety Report 9620689 (Version 1)
Quarter: 2013Q4

REPORT INFORMATION
  Report Type: Report from Study
  Country: ES (occurrence: ES)
  Receive Date: 20131015
  Receipt Date: 20131015
  Transmission Date: 20140711
  Serious: Yes (Hospitalization)
  Sender: FDA-Public Use
  Company Number: ES-ROCHE-1287638

PATIENT
  Age: 52 Year
  Sex: Male

DRUGS (3)
  1. PEG-INTERFERON ALFA 2A [Suspect]
     Indication: HEPATITIS C
     Route: 065
     Dates: start: 20121115
  2. RIBAVIRIN [Suspect]
     Indication: HEPATITIS C
     Route: 065
     Dates: start: 20121115
  3. BOCEPREVIR [Suspect]
     Indication: HEPATITIS C
     Route: 065
     Dates: start: 20121220

REACTIONS (3)
  - Asthenia [Recovered/Resolved]
  - Dysgeusia [Recovered/Resolved]
  - Pneumonia [Recovered/Resolved]
